FAERS Safety Report 9140797 (Version 1)
Quarter: 2013Q1

REPORT INFORMATION
  Report Type: Spontaneous
  Country: US (occurrence: US)
  Receive Date: 20130305
  Receipt Date: 20130305
  Transmission Date: 20140127
  Serious: Yes (Other)
  Sender: FDA-Public Use
  Company Number: US-ENDO PHARMACEUTICALS INC.-OPIR20110056

PATIENT
  Sex: 0

DRUGS (4)
  1. ALPRAZOLAM ER [Suspect]
     Indication: DRUG ABUSE
     Dosage: UNK
     Route: 065
  2. ALPRAZOLAM [Suspect]
     Indication: DRUG DIVERSION
  3. OPANA [Suspect]
     Indication: DRUG ABUSE
     Dosage: UNK
     Route: 065
  4. OPANA [Suspect]
     Indication: DRUG DIVERSION

REACTIONS (3)
  - Overdose [Unknown]
  - Drug abuse [Unknown]
  - Drug diversion [Unknown]
